FAERS Safety Report 9580426 (Version 1)
Quarter: 2013Q3

REPORT INFORMATION
  Report Type: Spontaneous
  Country: US (occurrence: None)
  Receive Date: 20130916
  Receipt Date: 20130916
  Transmission Date: 20140515
  Serious: Yes (Other)
  Sender: FDA-Public Use
  Company Number: JPI-P-032216

PATIENT
  Age: 20 Year
  Sex: Female
  Weight: 74.84 kg

DRUGS (9)
  1. XYREM [Suspect]
     Indication: NARCOLEPSY
     Dosage: 4.5 GM (2.25 GM, 2 IN 1 D)
     Route: 048
     Dates: start: 20130429, end: 20130429
  2. XYREM [Suspect]
     Indication: SOMNOLENCE
     Dosage: 4.5 GM (2.25 GM, 2 IN 1 D)
     Route: 048
     Dates: start: 20130429, end: 20130429
  3. KLONOPIN (CLONOZEPAM) [Concomitant]
  4. SINGULAIR (MONTELUKAST) 10MG [Concomitant]
  5. PROTONIX (PANTOPRAZOLE) [Concomitant]
  6. NAPROXEN [Concomitant]
  7. REGLAN (METOCLOPRAMIDE) [Concomitant]
  8. MIGRANAL (DIHYDROERGOTAMINE) [Concomitant]
  9. SEASONIQUE (ETHINYL ESTRADIOL/ LEVONORGESTREL) [Concomitant]

REACTIONS (9)
  - Depression [None]
  - Migraine [None]
  - Insomnia [None]
  - Feeling abnormal [None]
  - Somnolence [None]
  - Dizziness [None]
  - Vision blurred [None]
  - Stress [None]
  - Anxiety [None]
